FAERS Safety Report 5532418-8 (Version None)
Quarter: 2007Q4

REPORT INFORMATION
  Report Type: 
  Country: None (occurrence: None)
  Receive Date: 20071203
  Receipt Date: 20071121
  Transmission Date: 20080405
  Serious: Yes (Hospitalization, Other)
  Sender: FDA-Public Use
  Company Number: FR-PFIZER INC-2005081299

PATIENT
  Age: 70 Year
  Sex: Male
  Weight: 65 kg

DRUGS (4)
  1. VIAGRA [Suspect]
     Route: 048
  2. COLCHICINE [Concomitant]
     Dosage: TEXT:ONE TABLET
  3. VALSARTAN [Concomitant]
  4. LYSINE [Concomitant]

REACTIONS (6)
  - AMAUROSIS FUGAX [None]
  - ANGIOGRAM RETINA ABNORMAL [None]
  - OPTIC ISCHAEMIC NEUROPATHY [None]
  - PAPILLOEDEMA [None]
  - VISUAL ACUITY REDUCED [None]
  - VISUAL FIELD DEFECT [None]
